FAERS Safety Report 9494149 (Version 2)
Quarter: 2013Q4

REPORT INFORMATION
  Report Type: Spontaneous
  Country: BR (occurrence: BR)
  Receive Date: 20130903
  Receipt Date: 20131107
  Transmission Date: 20140711
  Serious: Yes (Other)
  Sender: FDA-Public Use
  Company Number: PHHY2013BR094487

PATIENT
  Age: 80 Year
  Sex: Male
  Weight: 65 kg

DRUGS (8)
  1. GLIVEC [Suspect]
     Indication: CHRONIC MYELOID LEUKAEMIA
     Dosage: UNK UKN, UNK
  2. OMEPRAZOLE [Concomitant]
     Dosage: 20 MG, 1 TABLET
  3. SIMVASTATIN [Concomitant]
     Dosage: 20 MG, 1 TABLET
  4. ACETYLCYSTEINE [Concomitant]
     Dosage: 600 MG, 1 SACHET
  5. ALENIA                             /01538101/ [Concomitant]
     Dosage: (12/400 MCG), BID
  6. SPIRIVA [Concomitant]
     Dosage: 2.5 MG, QD
  7. ALDACTONE [Concomitant]
     Dosage: 25 MG, QD
  8. DUOVENT [Concomitant]
     Dosage: UNK (2 DOSES)

REACTIONS (6)
  - Speech disorder [Unknown]
  - Eye disorder [Unknown]
  - Pain [Unknown]
  - Malaise [Unknown]
  - Dyspnoea [Unknown]
  - Therapeutic response decreased [Unknown]
